FAERS Safety Report 5834766-0 (Version None)
Quarter: 2008Q3

REPORT INFORMATION
  Report Type: 
  Country: None (occurrence: None)
  Receive Date: 20080801
  Receipt Date: 20080718
  Transmission Date: 20090109
  Serious: Yes (Other)
  Sender: FDA-Public Use
  Company Number: 1000000287

PATIENT
  Age: 36 Year
  Sex: Female

DRUGS (2)
  1. ESCITALOPRAM [Suspect]
     Indication: DEPRESSION
     Dosage: 10 MG (10 MG, 1 IN 1 D), ORAL
     Route: 048
     Dates: start: 20080612, end: 20080627
  2. OMEPRAZOLE [Concomitant]

REACTIONS (3)
  - DYSGEUSIA [None]
  - URTICARIA [None]
  - VAGINAL HAEMORRHAGE [None]
